FAERS Safety Report 16297199 (Version 2)
Quarter: 2021Q4

REPORT INFORMATION
  Report Type: Spontaneous
  Country: US (occurrence: US)
  Receive Date: 20190510
  Receipt Date: 20211013
  Transmission Date: 20220304
  Serious: Yes (Other)
  Sender: FDA-Public Use
  Company Number: PHEH2019US019812

PATIENT
  Age: 73 Year
  Sex: Male

DRUGS (1)
  1. TASIGNA [Suspect]
     Active Substance: NILOTINIB
     Indication: Chronic myeloid leukaemia
     Dosage: 300 MG, BID
     Route: 048
     Dates: start: 201304, end: 201609

REACTIONS (14)
  - Aortic stenosis [Unknown]
  - Enterocutaneous fistula [Unknown]
  - Gastrointestinal haemorrhage [Unknown]
  - Pneumonia [Unknown]
  - Diverticulum [Unknown]
  - Arterial occlusive disease [Unknown]
  - Injury [Unknown]
  - Coronary artery disease [Unknown]
  - Arthralgia [Unknown]
  - Anaemia [Unknown]
  - Arteriosclerosis [Unknown]
  - Emotional distress [Unknown]
  - Anxiety [Unknown]
  - Pain [Unknown]

NARRATIVE: CASE EVENT DATE: 20150123
